FAERS Safety Report 5188917-4 (Version None)
Quarter: 2006Q4

REPORT INFORMATION
  Report Type: 
  Country: None (occurrence: None)
  Receive Date: 20061215
  Receipt Date: 20061204
  Transmission Date: 20070319
  Serious: Yes (Death, Hospitalization, Other)
  Sender: FDA-Public Use
  Company Number: 2006151531

PATIENT
  Sex: Male

DRUGS (3)
  1. CELEBREX [Suspect]
     Dosage: ORAL
     Route: 048
     Dates: start: 20010801, end: 20050125
  2. BEXTRA [Suspect]
     Dosage: ORAL
     Route: 048
     Dates: start: 20050401, end: 20050401
  3. VIOXX [Suspect]
     Dosage: ORAL
     Route: 048
     Dates: start: 19990501, end: 20010801

REACTIONS (6)
  - CARDIAC FAILURE CONGESTIVE [None]
  - CEREBROVASCULAR ACCIDENT [None]
  - CORONARY ARTERY DISEASE [None]
  - MYOCARDIAL INFARCTION [None]
  - PULMONARY EMBOLISM [None]
  - TRANSIENT ISCHAEMIC ATTACK [None]
